FAERS Safety Report 14723802 (Version 1)
Quarter: 2018Q2

REPORT INFORMATION
  Report Type: Spontaneous
  Country: DE (occurrence: DE)
  Receive Date: 20180405
  Receipt Date: 20180405
  Transmission Date: 20180711
  Serious: Yes (Death, Hospitalization, Other)
  Sender: FDA-Public Use
  Company Number: DE-MYLANLABS-2018M1020710

PATIENT
  Age: 22 Year
  Sex: Female

DRUGS (5)
  1. QUETIAPINE. [Suspect]
     Active Substance: QUETIAPINE
     Indication: DELUSION
     Dosage: UNK
     Route: 065
  2. QUETIAPINE. [Suspect]
     Active Substance: QUETIAPINE
     Indication: PSYCHOTIC DISORDER
     Dosage: 600 MG, QD, DAILY DOSE: 600 MG MILLIGRAM(S) EVERY DAY
     Route: 065
  3. QUETIAPINE. [Suspect]
     Active Substance: QUETIAPINE
     Dosage: 600 MG, QD
  4. CEFUROXIME. [Concomitant]
     Active Substance: CEFUROXIME
     Indication: PRODUCT USED FOR UNKNOWN INDICATION
     Dosage: UNK
  5. LORAZEPAM. [Concomitant]
     Active Substance: LORAZEPAM
     Indication: DELUSION
     Dosage: 2 MG, QD, DAILY DOSE: 2 MG MILLIGRAM(S) EVERY DAY

REACTIONS (8)
  - Agranulocytosis [Fatal]
  - Pneumonia fungal [Fatal]
  - Fall [Fatal]
  - Metabolic acidosis [Fatal]
  - Cardiopulmonary failure [Fatal]
  - Pharyngitis [Fatal]
  - Multiple organ dysfunction syndrome [Fatal]
  - Sepsis [Fatal]
